FAERS Safety Report 10441684 (Version 1)
Quarter: 2014Q3

REPORT INFORMATION
  Report Type: Spontaneous
  Country: US (occurrence: US)
  Receive Date: 20140908
  Receipt Date: 20140908
  Transmission Date: 20150326
  Serious: Yes (Other)
  Sender: FDA-Public Use
  Company Number: US-CELGENEUS-163-20785-14085317

PATIENT

DRUGS (21)
  1. CYTARABINE. [Suspect]
     Active Substance: CYTARABINE
     Indication: PLASMA CELL MYELOMA
     Route: 065
  2. DEXAMETHASONE. [Suspect]
     Active Substance: DEXAMETHASONE
     Indication: PLASMA CELL MYELOMA
     Route: 065
  3. ADRIAMYCIN [Suspect]
     Active Substance: DOXORUBICIN HYDROCHLORIDE
     Indication: PLASMA CELL MYELOMA
     Route: 065
  4. ETOPOSIDE. [Suspect]
     Active Substance: ETOPOSIDE
     Indication: PLASMA CELL MYELOMA
     Route: 065
  5. CARMUSTINE [Concomitant]
     Active Substance: CARMUSTINE
     Indication: PLASMA CELL MYELOMA
     Route: 065
  6. CYCLOPHOSPHAMIDE. [Suspect]
     Active Substance: CYCLOPHOSPHAMIDE
     Indication: PLASMA CELL MYELOMA
     Route: 065
  7. CARFILZOMIB [Concomitant]
     Active Substance: CARFILZOMIB
     Indication: PLASMA CELL MYELOMA
     Route: 065
  8. TEMSIROLIMUS [Concomitant]
     Active Substance: TEMSIROLIMUS
     Indication: PLASMA CELL MYELOMA
     Route: 065
  9. IMATINIB [Concomitant]
     Active Substance: IMATINIB
     Indication: PLASMA CELL MYELOMA
     Route: 065
  10. MELPHALAN [Concomitant]
     Active Substance: MELPHALAN
     Indication: PLASMA CELL MYELOMA
     Route: 065
  11. FOLFOX [Concomitant]
     Active Substance: FLUOROURACIL\LEUCOVORIN CALCIUM\OXALIPLATIN
     Indication: PLASMA CELL MYELOMA
     Route: 065
  12. PACLITAXEL. [Concomitant]
     Active Substance: PACLITAXEL
     Indication: PLASMA CELL MYELOMA
     Route: 065
  13. CISPLATIN. [Suspect]
     Active Substance: CISPLATIN
     Indication: PLASMA CELL MYELOMA
     Route: 065
  14. BEVACIZUMAB [Suspect]
     Active Substance: BEVACIZUMAB
     Indication: PLASMA CELL MYELOMA
     Route: 065
  15. IPILIMUMAB [Concomitant]
     Active Substance: IPILIMUMAB
     Indication: PLASMA CELL MYELOMA
     Route: 065
  16. RITUXIMAB [Concomitant]
     Active Substance: RITUXIMAB
     Indication: PLASMA CELL MYELOMA
     Route: 065
  17. THALOMID [Suspect]
     Active Substance: THALIDOMIDE
     Indication: PLASMA CELL MYELOMA
     Route: 048
  18. PAXOPANIB [Concomitant]
     Indication: PLASMA CELL MYELOMA
     Route: 065
  19. BORTEZOMIB [Suspect]
     Active Substance: BORTEZOMIB
     Indication: PLASMA CELL MYELOMA
     Route: 065
  20. GEMCITABINE [Suspect]
     Active Substance: GEMCITABINE\GEMCITABINE HYDROCHLORIDE
     Indication: PLASMA CELL MYELOMA
     Route: 065
  21. SIROLIMUS. [Concomitant]
     Active Substance: SIROLIMUS
     Indication: PLASMA CELL MYELOMA
     Route: 065

REACTIONS (2)
  - Posterior reversible encephalopathy syndrome [Unknown]
  - Blood lactate dehydrogenase increased [Unknown]
